FAERS Safety Report 13341694 (Version 1)
Quarter: 2017Q1

REPORT INFORMATION
  Report Type: Spontaneous
  Country: US (occurrence: US)
  Receive Date: 20170316
  Receipt Date: 20170316
  Transmission Date: 20170428
  Serious: No
  Sender: FDA-Public Use
  Company Number: US-ROCHE-1848879

PATIENT
  Sex: Male

DRUGS (13)
  1. LUMIGAN [Concomitant]
     Active Substance: BIMATOPROST
  2. QUINAPRIL. [Concomitant]
     Active Substance: QUINAPRIL
  3. METFORMIN HYDROCHLORIDE. [Concomitant]
     Active Substance: METFORMIN HYDROCHLORIDE
  4. ERIVEDGE [Suspect]
     Active Substance: VISMODEGIB
     Indication: BASAL CELL CARCINOMA
     Route: 065
     Dates: start: 20160909
  5. ASPIRIN. [Concomitant]
     Active Substance: ASPIRIN
  6. METOPROLOL SUCCINATE. [Concomitant]
     Active Substance: METOPROLOL SUCCINATE
     Dosage: EXTENDED RELEASE
     Route: 065
  7. TEMAZEPAM. [Concomitant]
     Active Substance: TEMAZEPAM
  8. GLUCOVANCE [Concomitant]
     Active Substance: GLYBURIDE\METFORMIN HYDROCHLORIDE
  9. LANTUS SOLOSTAR [Concomitant]
     Active Substance: INSULIN GLARGINE
  10. FARXIGA [Concomitant]
     Active Substance: DAPAGLIFLOZIN PROPANEDIOL
  11. TRICOR [Concomitant]
     Active Substance: FENOFIBRATE
  12. PRAVACHOL [Concomitant]
     Active Substance: PRAVASTATIN SODIUM
  13. LORTAB [Concomitant]
     Active Substance: ACETAMINOPHEN\HYDROCODONE BITARTRATE

REACTIONS (3)
  - Weight decreased [Unknown]
  - Ageusia [Unknown]
  - Blood count abnormal [Unknown]
